FAERS Safety Report 22606000 (Version 1)
Quarter: 2023Q2

REPORT INFORMATION
  Report Type: Spontaneous
  Country: US (occurrence: None)
  Receive Date: 20230614
  Receipt Date: 20230614
  Transmission Date: 20230722
  Serious: No
  Sender: FDA-Public Use
  Company Number: None

PATIENT
  Sex: Male

DRUGS (21)
  1. INLYTA [Suspect]
     Active Substance: AXITINIB
     Indication: Metastases to lung
     Dosage: OTHER FREQUENCY : Q12H;?
     Route: 048
  2. INLYTA [Suspect]
     Active Substance: AXITINIB
     Dosage: OTHER FREQUENCY : Q12H;?
     Route: 048
  3. VITAMIN C [Concomitant]
  4. HYZAAR [Concomitant]
     Active Substance: HYDROCHLOROTHIAZIDE\LOSARTAN POTASSIUM
  5. OMEPRAZOLE [Concomitant]
  6. POTASSIUM [Concomitant]
     Active Substance: POTASSIUM
  7. SERTRALINE [Concomitant]
     Active Substance: SERTRALINE HYDROCHLORIDE
  8. VALIUM [Concomitant]
     Active Substance: DIAZEPAM
  9. KEYTRUDA [Concomitant]
  10. DIPHENHYDRAMINE [Concomitant]
     Active Substance: DIPHENHYDRAMINE
  11. DEXAMETHASONE [Concomitant]
  12. ZOFRAN [Concomitant]
  13. TYLENOL [Concomitant]
     Active Substance: ACETAMINOPHEN
  14. OPDIVO [Concomitant]
     Active Substance: NIVOLUMAB
  15. PREDNISONE [Concomitant]
     Active Substance: PREDNISONE
  16. TAMSULOSIN [Concomitant]
     Active Substance: TAMSULOSIN
  17. LOSARTAN [Concomitant]
  18. RA IRON [Concomitant]
  19. VITAMIN D3 [Concomitant]
  20. CALCIUM [Concomitant]
     Active Substance: CALCIUM
  21. ONE A DAY MENS 50+ [Concomitant]

REACTIONS (2)
  - Brain operation [None]
  - Therapy interrupted [None]
